FAERS Safety Report 11497546 (Version 1)
Quarter: 2015Q3

REPORT INFORMATION
  Report Type: Spontaneous
  Country: BR (occurrence: BR)
  Receive Date: 20150911
  Receipt Date: 20150911
  Transmission Date: 20151125
  Serious: Yes (Hospitalization, Other)
  Sender: FDA-Public Use
  Company Number: BR-PFIZER INC-2015298389

PATIENT
  Age: 36 Year
  Sex: Female
  Weight: 76 kg

DRUGS (3)
  1. NAPROGEN [Concomitant]
     Indication: ANTIINFLAMMATORY THERAPY
     Dosage: 1 TABLET (UNSPECIFIED DOSE), 2X/DAY
     Dates: start: 2014, end: 2015
  2. NAPROGEN [Concomitant]
     Indication: PAIN
  3. LYRICA [Suspect]
     Active Substance: PREGABALIN
     Indication: PAIN
     Dosage: 75 MG, DAILY
     Route: 048
     Dates: end: 201508

REACTIONS (4)
  - Dengue fever [Unknown]
  - Guillain-Barre syndrome [Not Recovered/Not Resolved]
  - Pain [Not Recovered/Not Resolved]
  - Condition aggravated [Not Recovered/Not Resolved]

NARRATIVE: CASE EVENT DATE: 201508
